FAERS Safety Report 9263751 (Version 1)
Quarter: 2013Q2

REPORT INFORMATION
  Report Type: Spontaneous
  Country: US (occurrence: None)
  Receive Date: 20130429
  Receipt Date: 20130429
  Transmission Date: 20140414
  Serious: Yes (Life-Threatening)
  Sender: FDA-Public Use
  Company Number: None

PATIENT
  Age: 84 Year
  Sex: Female
  Weight: 68.2 kg

DRUGS (2)
  1. AMOXICILLIN [Suspect]
     Indication: DENTAL CARE
     Dosage: 4 PRIOR TO DENTAL
     Route: 048
     Dates: start: 20130415, end: 20130417
  2. AMOXICILLIN [Suspect]
     Indication: CARDIAC MURMUR
     Dosage: 4 PRIOR TO DENTAL
     Route: 048
     Dates: start: 20130415, end: 20130417

REACTIONS (2)
  - Hypertension [None]
  - Palpitations [None]
